FAERS Safety Report 17810126 (Version 1)
Quarter: 2020Q2

REPORT INFORMATION
  Report Type: Spontaneous
  Country: US (occurrence: US)
  Receive Date: 20200521
  Receipt Date: 20200521
  Transmission Date: 20200714
  Serious: No
  Sender: FDA-Public Use
  Company Number: US-GW PHARMA-202005USGW01809

PATIENT

DRUGS (6)
  1. LAMICTAL [Suspect]
     Active Substance: LAMOTRIGINE
     Indication: PRODUCT USED FOR UNKNOWN INDICATION
     Dosage: UNK
     Route: 065
  2. EPIDIOLEX [Suspect]
     Active Substance: CANNABIDIOL
     Indication: PARTIAL SEIZURES
     Dosage: 4.8 MG/KG, 240 MILLIGRAM, BID
     Route: 048
     Dates: start: 20200423
  3. ONFI [Concomitant]
     Active Substance: CLOBAZAM
     Indication: PRODUCT USED FOR UNKNOWN INDICATION
     Dosage: UNK
     Route: 065
     Dates: end: 2020
  4. EPIDIOLEX [Suspect]
     Active Substance: CANNABIDIOL
     Indication: EPILEPSY
  5. EPIDIOLEX [Suspect]
     Active Substance: CANNABIDIOL
     Indication: SIMPLE PARTIAL SEIZURES
  6. ONFI [Concomitant]
     Active Substance: CLOBAZAM
     Dosage: UNK (MORNING DOSE DECREASED)
     Route: 065
     Dates: start: 2020

REACTIONS (4)
  - Product use in unapproved indication [Not Recovered/Not Resolved]
  - Irritability [Unknown]
  - Somnolence [Unknown]
  - Seizure [Unknown]

NARRATIVE: CASE EVENT DATE: 20200423
